FAERS Safety Report 15009551 (Version 3)
Quarter: 2018Q3

REPORT INFORMATION
  Report Type: Report from Study
  Country: None (occurrence: US)
  Receive Date: 20180614
  Receipt Date: 20180731
  Transmission Date: 20181010
  Serious: Yes (Hospitalization)
  Sender: FDA-Public Use
  Company Number: US-ABBVIE-18K-163-2385527-00

PATIENT
  Age: 52 Year
  Sex: Male
  Weight: 80.36 kg

DRUGS (1)
  1. HUMIRA [Suspect]
     Active Substance: ADALIMUMAB
     Indication: PSORIASIS
     Route: 058
     Dates: start: 201711, end: 20180410

REACTIONS (6)
  - Genital infection [Recovered/Resolved]
  - Weight decreased [Recovering/Resolving]
  - Pulmonary mass [Recovering/Resolving]
  - Palpitations [Recovering/Resolving]
  - Respiratory tract infection bacterial [Recovering/Resolving]
  - Pneumonia [Recovering/Resolving]

NARRATIVE: CASE EVENT DATE: 201804
